FAERS Safety Report 20966940 (Version 6)
Quarter: 2025Q3

REPORT INFORMATION
  Report Type: Report from Study
  Country: US (occurrence: US)
  Receive Date: 20220616
  Receipt Date: 20250714
  Transmission Date: 20251020
  Serious: Yes (Hospitalization, Other)
  Sender: TAKEDA
  Company Number: US-TAKEDA-US202008558

PATIENT
  Sex: Female

DRUGS (2)
  1. HUMAN IMMUNOGLOBULIN G [Suspect]
     Active Substance: HUMAN IMMUNOGLOBULIN G
     Indication: IgG deficiency
  2. HUMAN IMMUNOGLOBULIN G [Suspect]
     Active Substance: HUMAN IMMUNOGLOBULIN G
     Indication: Primary immunodeficiency syndrome

REACTIONS (11)
  - Pulmonary mass [Unknown]
  - Sepsis [Unknown]
  - Pneumonia [Unknown]
  - Bacterial sepsis [Unknown]
  - Systemic lupus erythematosus [Unknown]
  - Malabsorption [Unknown]
  - COVID-19 [Unknown]
  - Energy increased [Unknown]
  - Arthralgia [Unknown]
  - Tremor [Unknown]
  - Fatigue [Unknown]
